FAERS Safety Report 6395518-9 (Version None)
Quarter: 2009Q4

REPORT INFORMATION
  Report Type: 
  Country: None (occurrence: None)
  Receive Date: 20091009
  Receipt Date: 20091001
  Transmission Date: 20100525
  Serious: Yes (Other)
  Sender: FDA-Public Use
  Company Number: US-PFIZER INC-2006113707

PATIENT
  Sex: Male
  Weight: 78.9 kg

DRUGS (4)
  1. CADUET [Suspect]
     Indication: HYPERTENSION
     Dosage: 10 MG/20 MG, DAILY
     Dates: start: 20050101
  2. CADUET [Suspect]
     Indication: BLOOD CHOLESTEROL INCREASED
  3. SIMVASTATIN [Suspect]
     Indication: DRUG USE FOR UNKNOWN INDICATION
     Dosage: UNK
  4. AMLODIPINE BESYLATE [Suspect]
     Indication: DRUG USE FOR UNKNOWN INDICATION
     Dosage: 10 MG, UNK

REACTIONS (8)
  - BLOOD PRESSURE INCREASED [None]
  - BREAST ENLARGEMENT [None]
  - BREAST PAIN [None]
  - DEPRESSION [None]
  - HYPOGONADISM [None]
  - INTRAOCULAR PRESSURE INCREASED [None]
  - NIPPLE PAIN [None]
  - SWELLING [None]
